FAERS Safety Report 10384952 (Version 2)
Quarter: 2015Q1

REPORT INFORMATION
  Report Type: Spontaneous
  Country: MX (occurrence: MX)
  Receive Date: 20140814
  Receipt Date: 20150217
  Transmission Date: 20150720
  Serious: Yes (Other)
  Sender: FDA-Public Use
  Company Number: MX-AMGEN-MEXSP2014060821

PATIENT
  Age: 63 Year
  Sex: Female

DRUGS (1)
  1. XGEVA [Suspect]
     Active Substance: DENOSUMAB
     Indication: BREAST CANCER
     Dosage: 1.7 ML(120MG), UNK
     Route: 065
     Dates: start: 201405

REACTIONS (3)
  - Osteonecrosis of jaw [Not Recovered/Not Resolved]
  - Oral discomfort [Unknown]
  - Loose tooth [Unknown]

NARRATIVE: CASE EVENT DATE: 201405
